FAERS Safety Report 12508510 (Version 2)
Quarter: 2016Q2

REPORT INFORMATION
  Report Type: Spontaneous
  Country: US (occurrence: US)
  Receive Date: 20160629
  Receipt Date: 20160630
  Transmission Date: 20160815
  Serious: No
  Sender: FDA-Public Use
  Company Number: US-PFIZER INC-2016297617

PATIENT
  Age: 33 Year
  Sex: Male
  Weight: 36 kg

DRUGS (2)
  1. KEPPRA [Concomitant]
     Active Substance: LEVETIRACETAM
     Indication: SEIZURE
     Dosage: 3ML EVERY 12 HOURS THROUGH T-TUBE
  2. PROTONIX [Suspect]
     Active Substance: PANTOPRAZOLE SODIUM
     Indication: GASTROOESOPHAGEAL REFLUX DISEASE
     Dosage: 1 PACKET THROUGH T-TUBE EVERY 12 HOURS
     Dates: start: 20160527, end: 20160601

REACTIONS (4)
  - Reflux gastritis [Recovered/Resolved]
  - Cough [Recovered/Resolved]
  - Eructation [Unknown]
  - Vomiting [Recovered/Resolved]

NARRATIVE: CASE EVENT DATE: 20160527
